FAERS Safety Report 20318745 (Version 1)
Quarter: 2022Q1

REPORT INFORMATION
  Report Type: Spontaneous
  Country: US (occurrence: None)
  Receive Date: 20220109
  Receipt Date: 20220109
  Transmission Date: 20220423
  Serious: Yes (Other)
  Sender: FDA-Public Use
  Company Number: None

PATIENT
  Age: 34 Year
  Sex: Female

DRUGS (2)
  1. QBREXZA [Suspect]
     Active Substance: GLYCOPYRRONIUM TOSYLATE
     Indication: Hyperhidrosis
     Dosage: FREQUENCY : DAILY;?
     Route: 061
     Dates: start: 20220101, end: 20220108
  2. tremfaya [Concomitant]
     Dates: start: 20130105, end: 20220109

REACTIONS (1)
  - Urinary retention [None]

NARRATIVE: CASE EVENT DATE: 20220108
